FAERS Safety Report 4360865-9 (Version None)
Quarter: 2004Q2

REPORT INFORMATION
  Report Type: 
  Country: None (occurrence: None)
  Receive Date: 20040517
  Receipt Date: 20040504
  Transmission Date: 20050107
  Serious: No
  Sender: FDA-Public Use
  Company Number: 2004PK00821

PATIENT
  Age: 37 Year
  Sex: Female
  Weight: 56 kg

DRUGS (3)
  1. SEROQUEL [Suspect]
     Indication: PSYCHOTIC DISORDER
     Dosage: 300 MG DAILY PO
     Route: 048
     Dates: start: 20000101
  2. SEROQUEL [Suspect]
     Indication: PSYCHOTIC DISORDER
     Dosage: 200 MG DAILY PO
     Route: 048
  3. AMITRIPTYLINE HCL [Concomitant]

REACTIONS (8)
  - AUTOIMMUNE THYROIDITIS [None]
  - BODY TEMPERATURE INCREASED [None]
  - DRUG WITHDRAWAL SYNDROME [None]
  - DRY MOUTH [None]
  - HEART RATE INCREASED [None]
  - HYPOTHYROIDISM [None]
  - INSOMNIA [None]
  - MICTURITION URGENCY [None]
